FAERS Safety Report 9242125 (Version 2)
Quarter: 2013Q2

REPORT INFORMATION
  Report Type: Spontaneous
  Country: FR (occurrence: FR)
  Receive Date: 20130419
  Receipt Date: 20130430
  Transmission Date: 20140414
  Serious: Yes (Other)
  Sender: FDA-Public Use
  Company Number: FR-JNJFOC-20130407237

PATIENT
  Age: 44 Year
  Sex: Female
  Weight: 62 kg

DRUGS (3)
  1. REMICADE [Suspect]
     Indication: CROHN^S DISEASE
     Route: 042
     Dates: start: 2009
  2. SOLU-MEDROL [Concomitant]
     Route: 048
  3. PERFALGAN [Concomitant]
     Route: 048

REACTIONS (4)
  - Infusion related reaction [Unknown]
  - Dizziness [Recovered/Resolved]
  - Fall [Unknown]
  - Headache [Unknown]
